FAERS Safety Report 7016713-1 (Version None)
Quarter: 2010Q3

REPORT INFORMATION
  Report Type: 
  Country: None (occurrence: None)
  Receive Date: 20100927
  Receipt Date: 20100915
  Transmission Date: 20110219
  Serious: Yes (Hospitalization)
  Sender: FDA-Public Use
  Company Number: JP-ROCHE-612694

PATIENT
  Age: 28 Year
  Sex: Female
  Weight: 37 kg

DRUGS (23)
  1. TOCILIZUMAB [Suspect]
     Indication: RHEUMATOID ARTHRITIS
     Route: 041
     Dates: start: 20080611, end: 20080611
  2. TOCILIZUMAB [Suspect]
     Route: 041
     Dates: start: 20080709, end: 20080709
  3. TOCILIZUMAB [Suspect]
     Route: 041
     Dates: start: 20080806, end: 20080806
  4. TOCILIZUMAB [Suspect]
     Route: 041
     Dates: start: 20080903, end: 20080903
  5. TOCILIZUMAB [Suspect]
     Route: 041
     Dates: start: 20081001, end: 20081001
  6. TOCILIZUMAB [Suspect]
     Route: 041
     Dates: start: 20081029, end: 20081029
  7. TOCILIZUMAB [Suspect]
     Route: 041
     Dates: start: 20081126, end: 20081126
  8. TOCILIZUMAB [Suspect]
     Route: 041
     Dates: start: 20081224, end: 20081224
  9. TOCILIZUMAB [Suspect]
     Route: 041
     Dates: start: 20090218, end: 20090218
  10. TOCILIZUMAB [Suspect]
     Route: 041
     Dates: start: 20090318, end: 20090318
  11. TOCILIZUMAB [Suspect]
     Route: 041
     Dates: start: 20090415, end: 20090415
  12. TOCILIZUMAB [Suspect]
     Route: 041
     Dates: start: 20090612
  13. PREDNISOLONE [Suspect]
     Indication: RHEUMATOID ARTHRITIS
     Dosage: FORM: ORAL FORMULATION NOT OTHERWISE SPECIFIED
     Route: 048
     Dates: start: 20070604, end: 20080903
  14. PREDNISOLONE [Suspect]
     Route: 048
     Dates: start: 20080904
  15. PREDONINE [Concomitant]
     Dosage: DRUG REPORTED: PREDONINE (PREDNISOLONE SODIUM SUCCINATE), ROUTE: INTRAVENOUS NOS
     Route: 042
     Dates: start: 20080611, end: 20080611
  16. PREDONINE [Concomitant]
     Route: 042
     Dates: start: 20080709, end: 20080709
  17. PREDONINE [Concomitant]
     Route: 042
     Dates: start: 20080806, end: 20080806
  18. PREDONINE [Concomitant]
     Route: 042
     Dates: start: 20080903, end: 20080903
  19. PREDONINE [Concomitant]
     Route: 042
     Dates: start: 20081001, end: 20081001
  20. PREDONINE [Concomitant]
     Route: 042
     Dates: start: 20081029, end: 20081029
  21. PREDONINE [Concomitant]
     Route: 042
     Dates: start: 20081126, end: 20081126
  22. LOXONIN [Concomitant]
     Dosage: FORM: PERORAL AGENT
     Route: 048
     Dates: start: 20080917
  23. PARIET [Concomitant]
     Route: 048
     Dates: start: 20080917

REACTIONS (2)
  - HYPERLIPIDAEMIA [None]
  - PERIODONTITIS [None]
